FAERS Safety Report 8965116 (Version 1)
Quarter: 2012Q4

REPORT INFORMATION
  Report Type: Report from Study
  Country: CA (occurrence: CA)
  Receive Date: 20121214
  Receipt Date: 20121214
  Transmission Date: 20130627
  Serious: Yes (Death)
  Sender: FDA-Public Use
  Company Number: CA-ROCHE-1165591

PATIENT
  Sex: Male
  Weight: 68.55 kg

DRUGS (4)
  1. CAPECITABINE [Suspect]
     Indication: BONE NEOPLASM MALIGNANT
     Route: 048
  2. ADALAT [Concomitant]
  3. SIMVASTATIN [Concomitant]
  4. ACEBUTOLOL [Concomitant]

REACTIONS (1)
  - Death [Fatal]
